FAERS Safety Report 24527697 (Version 1)
Quarter: 2024Q4

REPORT INFORMATION
  Report Type: Spontaneous
  Country: US (occurrence: US)
  Receive Date: 20241021
  Receipt Date: 20241021
  Transmission Date: 20250114
  Serious: Yes (Hospitalization)
  Sender: AUROBINDO
  Company Number: US-AUROBINDO-AUR-APL-2024-050752

PATIENT
  Age: 46 Year
  Sex: Male

DRUGS (7)
  1. DEXMEDETOMIDINE [Suspect]
     Active Substance: DEXMEDETOMIDINE
     Indication: Delirium tremens
     Dosage: 1.6 MICROGRAM/KILOGRAM, EVERY HOUR
     Route: 065
  2. PHENYTOIN [Suspect]
     Active Substance: PHENYTOIN
     Indication: Delirium tremens
     Dosage: 10 MILLIGRAM/KILOGRAM (LOADING DOSE)
     Route: 065
  3. PHENYTOIN [Suspect]
     Active Substance: PHENYTOIN
     Dosage: 260 MILLIGRAM, 3 TIMES A DAY
     Route: 065
  4. THIAMINE [Suspect]
     Active Substance: THIAMINE
     Indication: Delirium tremens
     Dosage: UNK
     Route: 065
  5. LORAZEPAM [Suspect]
     Active Substance: LORAZEPAM
     Indication: Delirium tremens
     Dosage: UNK
     Route: 065
  6. PROPOFOL [Suspect]
     Active Substance: PROPOFOL
     Indication: Delirium tremens
     Dosage: UNK
     Route: 065
  7. MIDAZOLAM [Suspect]
     Active Substance: MIDAZOLAM
     Indication: Delirium tremens
     Dosage: UNK
     Route: 065

REACTIONS (3)
  - Rebound effect [Unknown]
  - Drug withdrawal syndrome [Unknown]
  - Drug ineffective [Unknown]
